FAERS Safety Report 7386680-X (Version None)
Quarter: 2011Q1

REPORT INFORMATION
  Report Type: 
  Country: None (occurrence: None)
  Receive Date: 20110329
  Receipt Date: 20110329
  Transmission Date: 20110831
  Serious: Yes (Life-Threatening, Other)
  Sender: FDA-Public Use
  Company Number: None

PATIENT
  Age: 10 Year
  Sex: Male
  Weight: 26.8 kg

DRUGS (4)
  1. RITALIN [Suspect]
  2. METHYLIN [Suspect]
     Indication: HYPERSENSITIVITY
  3. METHYLIN [Suspect]
     Indication: AUTISM
  4. PERIACTIN [Suspect]

REACTIONS (5)
  - AGGRESSION [None]
  - WEIGHT DECREASED [None]
  - HALLUCINATION [None]
  - DYSKINESIA [None]
  - INSOMNIA [None]
